FAERS Safety Report 7418668-4 (Version None)
Quarter: 2011Q2

REPORT INFORMATION
  Report Type: 
  Country: None (occurrence: None)
  Receive Date: 20110415
  Receipt Date: 20110316
  Transmission Date: 20111010
  Serious: No
  Sender: FDA-Public Use
  Company Number: US-BAYER-2011-024684

PATIENT
  Sex: Female
  Weight: 67 kg

DRUGS (7)
  1. LEVOTHYROXINE SODIUM [Concomitant]
  2. OMEPRAZOLE [Concomitant]
  3. DIOVAN [Concomitant]
     Dosage: 1 DF, BID
  4. LOVASTATIN [Concomitant]
  5. ALEVE (CAPLET) [Suspect]
     Indication: BACK PAIN
     Dosage: 2 DF, QD
     Route: 048
  6. PREMARIN [Concomitant]
  7. TPN [Concomitant]

REACTIONS (1)
  - BACK PAIN [None]
